FAERS Safety Report 11460026 (Version 1)
Quarter: 2015Q3

REPORT INFORMATION
  Report Type: Spontaneous
  Country: FR (occurrence: FR)
  Receive Date: 20150904
  Receipt Date: 20150904
  Transmission Date: 20151125
  Serious: Yes (Hospitalization)
  Sender: FDA-Public Use
  Company Number: FR-SA-2015SA130811

PATIENT
  Age: 67 Year
  Sex: Male

DRUGS (14)
  1. PREVISCAN [Suspect]
     Active Substance: FLUINDIONE
     Dosage: FORM: SCORED TABLET
     Route: 048
     Dates: end: 20150404
  2. PLAVIX [Suspect]
     Active Substance: CLOPIDOGREL BISULFATE
     Route: 048
     Dates: end: 20150405
  3. KARDEGIC [Suspect]
     Active Substance: ASPIRIN LYSINE
     Route: 065
  4. TIVICAY [Suspect]
     Active Substance: DOLUTEGRAVIR SODIUM
     Route: 048
     Dates: start: 20150228, end: 20150405
  5. INEXIUM [Concomitant]
     Active Substance: ESOMEPRAZOLE
  6. GLUCOPHAGE [Concomitant]
     Active Substance: METFORMIN HYDROCHLORIDE
  7. COVERAM [Concomitant]
     Active Substance: AMLODIPINE\PERINDOPRIL
     Dosage: 10/10
  8. EZETROL [Concomitant]
     Active Substance: EZETIMIBE
  9. KIVEXA [Concomitant]
     Active Substance: ABACAVIR SULFATE\LAMIVUDINE
  10. TEMERIT [Concomitant]
     Active Substance: NEBIVOLOL
  11. CRESTOR [Concomitant]
     Active Substance: ROSUVASTATIN CALCIUM
  12. NORVIR [Concomitant]
     Active Substance: RITONAVIR
     Dates: end: 20150228
  13. PREZISTA [Concomitant]
     Active Substance: DARUNAVIR ETHANOLATE
     Dates: end: 20150228
  14. FLECAINE [Concomitant]
     Active Substance: FLECAINIDE

REACTIONS (2)
  - Intestinal haematoma [Recovered/Resolved]
  - Hypoprothrombinaemia [Recovered/Resolved]

NARRATIVE: CASE EVENT DATE: 20150331
